FAERS Safety Report 5523788-5 (Version None)
Quarter: 2007Q4

REPORT INFORMATION
  Report Type: 
  Country: None (occurrence: None)
  Receive Date: 20071121
  Receipt Date: 20071113
  Transmission Date: 20080405
  Serious: Yes (Hospitalization)
  Sender: FDA-Public Use
  Company Number: US-JNJFOC-20070903268

PATIENT
  Sex: Female
  Weight: 115.94 kg

DRUGS (14)
  1. REMICADE [Suspect]
     Route: 042
  2. REMICADE [Suspect]
     Route: 042
  3. REMICADE [Suspect]
     Route: 042
  4. REMICADE [Suspect]
     Indication: RHEUMATOID ARTHRITIS
     Route: 042
  5. PREDNISONE TAB [Concomitant]
  6. METHOTREXATE [Concomitant]
  7. LEVOTHYROXINE SODIUM [Concomitant]
  8. GLIPIZIDE [Concomitant]
     Indication: GLUCOSE TOLERANCE IMPAIRED
  9. ESTROGEN [Concomitant]
  10. FOLIC ACID [Concomitant]
  11. CITRACAL PLUS D [Concomitant]
  12. FOSAMAX [Concomitant]
  13. MOBIC [Concomitant]
  14. TYLENOL [Concomitant]

REACTIONS (7)
  - BACTERIAL INFECTION [None]
  - CHOLELITHIASIS [None]
  - COLITIS ISCHAEMIC [None]
  - FALL [None]
  - GASTROINTESTINAL HAEMORRHAGE [None]
  - SPINAL FRACTURE [None]
  - THERAPEUTIC RESPONSE DECREASED [None]
